FAERS Safety Report 5419452-3 (Version None)
Quarter: 2007Q3

REPORT INFORMATION
  Report Type: 
  Country: None (occurrence: None)
  Receive Date: 20070820
  Receipt Date: 20070814
  Transmission Date: 20080115
  Serious: Yes (Other)
  Sender: FDA-Public Use
  Company Number: B0483214A

PATIENT
  Age: 79 Year
  Sex: Female

DRUGS (1)
  1. ARIXTRA [Suspect]
     Indication: THROMBOSIS PROPHYLAXIS
     Dosage: 2.5MG PER DAY
     Route: 058
     Dates: start: 20070802, end: 20070807

REACTIONS (3)
  - CARDIAC FAILURE [None]
  - HAEMORRHAGE SUBCUTANEOUS [None]
  - PULMONARY OEDEMA [None]
